FAERS Safety Report 5411977-X (Version None)
Quarter: 2007Q3

REPORT INFORMATION
  Report Type: 
  Country: None (occurrence: None)
  Receive Date: 20070810
  Receipt Date: 20070810
  Transmission Date: 20080115
  Serious: No
  Sender: FDA-Public Use
  Company Number: None

PATIENT
  Age: 17 Year
  Sex: Female
  Weight: 56.6996 kg

DRUGS (1)
  1. HEPARAIN 25000 UNITS/250 ML BAXTER [Suspect]
     Dosage: 1000 UNITS/HR IV DRIP
     Route: 041
     Dates: start: 20070719, end: 20070723

REACTIONS (1)
  - ACTIVATED PARTIAL THROMBOPLASTIN TIME PROLONGED [None]
